FAERS Safety Report 6709397-0 (Version None)
Quarter: 2010Q2

REPORT INFORMATION
  Report Type: 
  Country: None (occurrence: None)
  Receive Date: 20100429
  Receipt Date: 20100415
  Transmission Date: 20101027
  Serious: Yes (Hospitalization)
  Sender: FDA-Public Use
  Company Number: 006604

PATIENT
  Sex: Male

DRUGS (5)
  1. CERTOLIZUMAB PEGOL (CERTOLIZUMAB PEGOL) [Suspect]
     Indication: CROHN'S DISEASE
     Dosage: 400 MG 1X.2WEEKS, - NR OF DOSES : 3 SUBCUTANEOUS, 400 MG 1X/MONTH SUBCUTANEOUS, 400 MG 1X/MONTH SUBC
     Route: 058
     Dates: start: 20040718, end: 20040815
  2. CERTOLIZUMAB PEGOL (CERTOLIZUMAB PEGOL) [Suspect]
     Indication: CROHN'S DISEASE
     Dosage: 400 MG 1X.2WEEKS, - NR OF DOSES : 3 SUBCUTANEOUS, 400 MG 1X/MONTH SUBCUTANEOUS, 400 MG 1X/MONTH SUBC
     Route: 058
     Dates: start: 20040912, end: 20041229
  3. CERTOLIZUMAB PEGOL (CERTOLIZUMAB PEGOL) [Suspect]
     Indication: CROHN'S DISEASE
     Dosage: 400 MG 1X.2WEEKS, - NR OF DOSES : 3 SUBCUTANEOUS, 400 MG 1X/MONTH SUBCUTANEOUS, 400 MG 1X/MONTH SUBC
     Route: 058
     Dates: start: 20050112
  4. PREDNISONE [Concomitant]
  5. PENTASA [Concomitant]

REACTIONS (5)
  - ABDOMINAL ABSCESS [None]
  - ANAL INFLAMMATION [None]
  - PERINEAL ABSCESS [None]
  - PERIRECTAL ABSCESS [None]
  - SEPSIS [None]
